FAERS Safety Report 13861720 (Version 1)
Quarter: 2017Q3

REPORT INFORMATION
  Report Type: Spontaneous
  Country: CN (occurrence: CN)
  Receive Date: 20170811
  Receipt Date: 20170811
  Transmission Date: 20171127
  Serious: Yes (Other)
  Sender: FDA-Public Use
  Company Number: CN-BRISTOL-MYERS SQUIBB COMPANY-BMS-2017-070012

PATIENT
  Age: 36 Year
  Sex: Male
  Weight: 60 kg

DRUGS (1)
  1. BARACLUDE [Suspect]
     Active Substance: ENTECAVIR
     Indication: HEPATITIS B
     Dosage: 0.5 MG, QD
     Route: 048
     Dates: start: 20170616, end: 20170617

REACTIONS (4)
  - Gastrointestinal disorder [Unknown]
  - Heat stroke [Unknown]
  - Rash [Recovered/Resolved]
  - Nausea [Recovered/Resolved]

NARRATIVE: CASE EVENT DATE: 20170616
